FAERS Safety Report 21792363 (Version 2)
Quarter: 2023Q1

REPORT INFORMATION
  Report Type: Report from Study
  Country: US (occurrence: US)
  Receive Date: 20221229
  Receipt Date: 20230105
  Transmission Date: 20230418
  Serious: No
  Sender: FDA-Public Use
  Company Number: US-ABBVIE-4251571

PATIENT
  Age: 26 Year
  Sex: Female
  Weight: 54.431 kg

DRUGS (1)
  1. SKYRIZI [Suspect]
     Active Substance: RISANKIZUMAB-RZAA
     Indication: Psoriasis
     Dosage: EVENT OF ALLERGIC REACTION OF THROAT SWELLING WAS RECOVERED ON AN UNKNOWN DATE IN  2022
     Route: 058
     Dates: start: 20221118, end: 20221118

REACTIONS (5)
  - Hypersensitivity [Not Recovered/Not Resolved]
  - Rash [Not Recovered/Not Resolved]
  - Allergic oedema [Recovered/Resolved]
  - Throat tightness [Not Recovered/Not Resolved]
  - Rash [Recovered/Resolved with Sequelae]

NARRATIVE: CASE EVENT DATE: 20221122
